FAERS Safety Report 18224088 (Version 2)
Quarter: 2020Q3

REPORT INFORMATION
  Report Type: Spontaneous
  Country: US (occurrence: US)
  Receive Date: 20200902
  Receipt Date: 20200902
  Transmission Date: 20201103
  Serious: Yes (Other)
  Sender: FDA-Public Use
  Company Number: US-GILEAD-2020-0489708

PATIENT
  Age: 59 Year
  Sex: Female
  Weight: 109.57 kg

DRUGS (12)
  1. EPCLUSA [Suspect]
     Active Substance: SOFOSBUVIR\VELPATASVIR
     Indication: CHRONIC HEPATITIS C
     Dosage: 100 MG, QD
     Route: 048
     Dates: start: 20190510, end: 20190809
  2. PROAIR HFA [Concomitant]
     Active Substance: ALBUTEROL SULFATE
  3. BUPROPION. [Concomitant]
     Active Substance: BUPROPION
     Dosage: UNK
  4. VITAMIN D3 [Concomitant]
     Active Substance: CHOLECALCIFEROL
     Dosage: UNK
  5. MAVYRET [Concomitant]
     Active Substance: GLECAPREVIR\PIBRENTASVIR
     Dosage: UNK
  6. RIBAVIRIN. [Concomitant]
     Active Substance: RIBAVIRIN
  7. TWINRIX [Concomitant]
     Active Substance: HEPATITIS A VIRUS STRAIN HM175 ANTIGEN (FORMALDEHYDE INACTIVATED)\HEPATITIS B VIRUS SUBTYPE ADW2 HBSAG SURFACE PROTEIN ANTIGEN
     Indication: HEPATIC CIRRHOSIS
  8. VOSEVI [Suspect]
     Active Substance: SOFOSBUVIR\VELPATASVIR\VOXILAPREVIR
     Indication: CHRONIC HEPATITIS C
     Dosage: UNK
     Route: 065
     Dates: start: 20200120, end: 202004
  9. VITAMIN D3 [Concomitant]
     Active Substance: CHOLECALCIFEROL
     Dosage: 2000 UNITS DAILY
  10. SOVALDI [Suspect]
     Active Substance: SOFOSBUVIR
     Indication: CHRONIC HEPATITIS C
     Dosage: 400 MG
     Route: 048
     Dates: start: 20200807
  11. CHOLECALCIFEROL [Concomitant]
     Active Substance: CHOLECALCIFEROL
  12. SPIRIVA [Concomitant]
     Active Substance: TIOTROPIUM BROMIDE MONOHYDRATE
     Dosage: UNK
     Route: 055

REACTIONS (22)
  - Muscle spasms [Unknown]
  - Drug ineffective [Not Recovered/Not Resolved]
  - Back pain [Unknown]
  - Serum ferritin increased [Unknown]
  - Breast cellulitis [Recovered/Resolved]
  - Breast abscess [Recovered/Resolved]
  - Hepatitis C [Not Recovered/Not Resolved]
  - Breast disorder [Unknown]
  - Genotype drug resistance test positive [Not Recovered/Not Resolved]
  - Dermatitis [Recovering/Resolving]
  - Drug ineffective [Not Recovered/Not Resolved]
  - Onychomycosis [Unknown]
  - Ear infection [Unknown]
  - Gastrooesophageal reflux disease [Unknown]
  - Tinea versicolour [Unknown]
  - Hepatitis C [Not Recovered/Not Resolved]
  - Lipoma [Unknown]
  - Hepatomegaly [Unknown]
  - Dermatitis contact [Recovering/Resolving]
  - Neuropathy peripheral [Unknown]
  - Hyperlipidaemia [Unknown]
  - Alanine aminotransferase increased [Unknown]

NARRATIVE: CASE EVENT DATE: 20191119
